FAERS Safety Report 11847326 (Version 1)
Quarter: 2015Q4

REPORT INFORMATION
  Report Type: Spontaneous
  Country: US (occurrence: US)
  Receive Date: 20151217
  Receipt Date: 20151217
  Transmission Date: 20160305
  Serious: No
  Sender: FDA-Public Use
  Company Number: US-ROCHE-1520232

PATIENT
  Age: 73 Year
  Sex: Female

DRUGS (1)
  1. TAMIFLU [Suspect]
     Active Substance: OSELTAMIVIR PHOSPHATE
     Indication: INFLUENZA LIKE ILLNESS
     Dosage: ONLY TOOK ONE PILL TOTAL
     Route: 048
     Dates: start: 20150109, end: 20150109

REACTIONS (4)
  - Confusional state [Unknown]
  - Hypersomnia [Unknown]
  - Blood pressure increased [Unknown]
  - Respiration abnormal [Unknown]

NARRATIVE: CASE EVENT DATE: 20150109
